FAERS Safety Report 8610784-4 (Version None)
Quarter: 2012Q3

REPORT INFORMATION
  Report Type: 
  Country: None (occurrence: None)
  Receive Date: 20120822
  Receipt Date: 20120810
  Transmission Date: 20120928
  Serious: Yes (Other)
  Sender: FDA-Public Use
  Company Number: US-ELI_LILLY_AND_COMPANY-US201208003733

PATIENT
  Age: 69 Year
  Sex: Female

DRUGS (4)
  1. CALCIUM [Concomitant]
     Dosage: UNK
  2. FORTEO [Suspect]
     Indication: OSTEOPENIA
     Dosage: UNK UNK, QD
     Dates: start: 20120629
  3. CALCIUM CITRATE WITH VITAMIN D [Concomitant]
     Dosage: 2 DF, QD
  4. VITAMIN D [Concomitant]
     Dosage: UNK, QD

REACTIONS (8)
  - PATHOLOGICAL FRACTURE [None]
  - BACK PAIN [None]
  - SPINAL FRACTURE [None]
  - OFF LABEL USE [None]
  - VITAMIN D DECREASED [None]
  - SPINAL COLUMN STENOSIS [None]
  - ANXIETY [None]
  - OSTEOARTHRITIS [None]
